FAERS Safety Report 18630397 (Version 2)
Quarter: 2021Q1

REPORT INFORMATION
  Report Type: Spontaneous
  Country: MX (occurrence: MX)
  Receive Date: 20201217
  Receipt Date: 20210121
  Transmission Date: 20210419
  Serious: Yes (Hospitalization, Other)
  Sender: FDA-Public Use
  Company Number: MX-SA-2020SA344621

PATIENT
  Age: 59 Year
  Sex: Female
  Weight: 67 kg

DRUGS (1)
  1. LANTUS [Suspect]
     Active Substance: INSULIN GLARGINE
     Indication: TYPE 2 DIABETES MELLITUS
     Dosage: 38 IU, UNK
     Route: 058
     Dates: start: 2012, end: 202011

REACTIONS (7)
  - Renal failure [Not Recovered/Not Resolved]
  - Gait disturbance [Recovering/Resolving]
  - COVID-19 pneumonia [Recovered/Resolved]
  - Diabetes mellitus inadequate control [Not Recovered/Not Resolved]
  - Diabetic neuropathy [Not Recovered/Not Resolved]
  - Visual impairment [Not Recovered/Not Resolved]
  - Diabetic vascular disorder [Unknown]

NARRATIVE: CASE EVENT DATE: 2017
